FAERS Safety Report 16897387 (Version 3)
Quarter: 2023Q1

REPORT INFORMATION
  Report Type: Spontaneous
  Country: IT (occurrence: IT)
  Receive Date: 20191009
  Receipt Date: 20230207
  Transmission Date: 20230417
  Serious: Yes (Other)
  Sender: FDA-Public Use
  Company Number: None

PATIENT
  Age: 32 Year
  Sex: Female

DRUGS (3)
  1. ALPRAZOLAM [Suspect]
     Active Substance: ALPRAZOLAM
     Indication: Anxiety
     Dosage: 3 DOSAGE FORM IN TOTAL
     Route: 048
     Dates: start: 20190617, end: 20190617
  2. SERTRALINE [Suspect]
     Active Substance: SERTRALINE HYDROCHLORIDE
     Indication: Depression
     Dosage: 25 DOSAGE FORM IN TOTAL
     Route: 048
     Dates: start: 20190617, end: 20190617
  3. VALPROATE SODIUM [Suspect]
     Active Substance: VALPROATE SODIUM
     Indication: Mania
     Dosage: 5 DOSAGE FORM IN TOTAL
     Route: 048
     Dates: start: 20190617, end: 20190617

REACTIONS (3)
  - Poisoning [Recovered/Resolved]
  - Intentional self-injury [Recovered/Resolved]
  - Overdose [Unknown]

NARRATIVE: CASE EVENT DATE: 20190617
